FAERS Safety Report 20430419 (Version 1)
Quarter: 2022Q1

REPORT INFORMATION
  Report Type: Report from Study
  Country: FR (occurrence: FR)
  Receive Date: 20220204
  Receipt Date: 20220204
  Transmission Date: 20220423
  Serious: Yes (Other)
  Sender: FDA-Public Use
  Company Number: FR-SERVIER-S20007969

PATIENT

DRUGS (17)
  1. PEGASPARGASE [Suspect]
     Active Substance: PEGASPARGASE
     Indication: Acute lymphocytic leukaemia
     Dosage: 2775 IU, ON D6
     Route: 042
     Dates: start: 20181015, end: 20181015
  2. DEXAMETHASONE [Concomitant]
     Active Substance: DEXAMETHASONE
     Indication: Acute lymphocytic leukaemia
  3. CYTARABINE DCI [Concomitant]
     Indication: Acute lymphocytic leukaemia
  4. MITOXANTRONE [Concomitant]
     Active Substance: MITOXANTRONE HYDROCHLORIDE
     Indication: Acute lymphocytic leukaemia
  5. ETOPOSIDE [Concomitant]
     Active Substance: ETOPOSIDE
     Indication: Acute lymphocytic leukaemia
  6. HYDROCORTISONE [Concomitant]
     Active Substance: HYDROCORTISONE
     Indication: Acute lymphocytic leukaemia
  7. TN UNSPECIFIED [Concomitant]
     Indication: Pain
     Dosage: 2000 MG
     Route: 048
     Dates: start: 20180619
  8. TN UNSPECIFIED [Concomitant]
     Indication: Pyrexia
     Dosage: 2400 UNK
     Route: 042
     Dates: start: 20180619
  9. ONDANSETRON [Concomitant]
     Active Substance: ONDANSETRON
     Indication: Nausea
     Dosage: 16 MG
     Route: 048
     Dates: start: 20180626
  10. ONDANSETRON [Concomitant]
     Active Substance: ONDANSETRON
     Indication: Vomiting
     Dosage: 16 MG
     Route: 042
     Dates: start: 20180626
  11. Calcidose [Concomitant]
     Indication: Prophylaxis
     Dosage: 500 MG
     Route: 048
     Dates: start: 20180628
  12. TN UNSPECIFIED [Concomitant]
     Indication: Prophylaxis
     Dosage: 100 IU
     Route: 048
     Dates: start: 20180628
  13. OMEPRAZOLE [Concomitant]
     Active Substance: OMEPRAZOLE
     Indication: Gastritis
     Dosage: 20 MG
     Route: 042
     Dates: start: 20180701
  14. POLARAMINE [Concomitant]
     Active Substance: DEXCHLORPHENIRAMINE MALEATE
     Indication: Allergy prophylaxis
     Dosage: 5 MG
     Route: 042
     Dates: start: 20180707
  15. URSODIOL [Concomitant]
     Active Substance: URSODIOL
     Indication: Cholestasis
     Dosage: 600 MG
     Route: 048
     Dates: start: 20180924
  16. TN UNSPECIFIED [Concomitant]
     Indication: Prophylaxis
     Dosage: 300 MG
     Dates: start: 20180927
  17. ATARAX [Concomitant]
     Active Substance: HYDROXYZINE HYDROCHLORIDE
     Indication: Mood altered
     Dosage: 25 MG
     Route: 048
     Dates: start: 20181014

REACTIONS (1)
  - Staphylococcal sepsis [Recovered/Resolved]

NARRATIVE: CASE EVENT DATE: 20181019
